FAERS Safety Report 13944071 (Version 1)
Quarter: 2017Q3

REPORT INFORMATION
  Report Type: Spontaneous
  Country: US (occurrence: US)
  Receive Date: 20170907
  Receipt Date: 20170907
  Transmission Date: 20171128
  Serious: No
  Sender: FDA-Public Use
  Company Number: US-009507513-1708USA005208

PATIENT
  Sex: Female
  Weight: 65.76 kg

DRUGS (1)
  1. NEXPLANON [Suspect]
     Active Substance: ETONOGESTREL
     Indication: CONTRACEPTION
     Dosage: 3 YEAR IMPLANT INSERTED IN LEFT ARM
     Route: 059
     Dates: start: 20160223

REACTIONS (4)
  - Amenorrhoea [Unknown]
  - Menorrhagia [Not Recovered/Not Resolved]
  - Cystitis [Recovered/Resolved]
  - Menstruation normal [Unknown]

NARRATIVE: CASE EVENT DATE: 2016
